FAERS Safety Report 8802706 (Version 2)
Quarter: 2012Q4

REPORT INFORMATION
  Report Type: 
  Country: US (occurrence: US)
  Receive Date: 20120921
  Receipt Date: 20121005
  Transmission Date: 20130627
  Serious: No
  Sender: FDA-Public Use
  Company Number: US-VERTEX PHARMACEUTICAL INC.-2012-021177

PATIENT
  Age: 63 Year
  Sex: Female
  Weight: 58 kg

DRUGS (15)
  1. VX-950 [Suspect]
     Indication: HEPATITIS C
     Dosage: 750 mg, tid
     Route: 048
     Dates: start: 20120907
  2. PEGASYS [Suspect]
     Indication: HEPATITIS C
  3. RIBAVIRIN [Suspect]
     Indication: HEPATITIS C
  4. ADVIL                              /00044201/ [Concomitant]
  5. CALCIUM [Concomitant]
  6. DEVIL^S CLAW CAP [Concomitant]
  7. FISH OIL [Concomitant]
  8. FLONASE [Concomitant]
  9. IBUPROFEN [Concomitant]
  10. MULTIVITAMIN                       /00097801/ [Concomitant]
  11. PATANOL [Concomitant]
  12. VIVELLE                            /00045401/ [Concomitant]
  13. ZYRTEC [Concomitant]
  14. CYCLOBENZAPRINE [Concomitant]
     Dosage: 5 mg, UNK
  15. PREPARATION H                      /00611001/ [Concomitant]

REACTIONS (10)
  - Headache [Unknown]
  - Arthralgia [Unknown]
  - Insomnia [Unknown]
  - Irritability [Unknown]
  - Chills [Unknown]
  - Constipation [Unknown]
  - Fatigue [Unknown]
  - Nausea [Unknown]
  - Pruritus [Unknown]
  - Haemorrhoids [Unknown]
